FAERS Safety Report 11685457 (Version 9)
Quarter: 2017Q3

REPORT INFORMATION
  Report Type: Report from Study
  Country: US (occurrence: US)
  Receive Date: 20151030
  Receipt Date: 20170929
  Transmission Date: 20171127
  Serious: No
  Sender: FDA-Public Use
  Company Number: PHHY2015US099098

PATIENT
  Age: 45 Year
  Sex: Female

DRUGS (1)
  1. GILENYA [Suspect]
     Active Substance: FINGOLIMOD HYDROCHLORIDE
     Indication: MULTIPLE SCLEROSIS
     Dosage: UNK, QD
     Route: 048

REACTIONS (22)
  - Melanocytic naevus [Unknown]
  - Rosacea [Unknown]
  - Musculoskeletal stiffness [Recovered/Resolved]
  - Dyspepsia [Recovered/Resolved]
  - Haemangioma of skin [Unknown]
  - Lentigo [Unknown]
  - Hypoaesthesia [Unknown]
  - Vomiting [Recovered/Resolved]
  - Musculoskeletal pain [Recovered/Resolved]
  - Neck pain [Recovered/Resolved]
  - Muscle spasticity [Recovered/Resolved]
  - Back pain [Recovered/Resolved]
  - Mechanical urticaria [Recovered/Resolved]
  - Papule [Unknown]
  - Depression [Unknown]
  - Seborrhoeic keratosis [Unknown]
  - Urinary incontinence [Unknown]
  - Gait disturbance [Unknown]
  - Sedation [Recovered/Resolved]
  - Nausea [Recovered/Resolved]
  - Lymphopenia [Recovered/Resolved]
  - White blood cell count decreased [Unknown]

NARRATIVE: CASE EVENT DATE: 20150506
